FAERS Safety Report 23956380 (Version 2)
Quarter: 2025Q4

REPORT INFORMATION
  Report Type: Spontaneous
  Country: EU (occurrence: EU)
  Receive Date: 20240610
  Receipt Date: 20251222
  Transmission Date: 20260118
  Serious: Yes (Hospitalization)
  Sender: MERCK KGAA
  Company Number: None

PATIENT
  Age: 0 Day
  Sex: Female
  Weight: 3 kg

DRUGS (6)
  1. LEVOTHYROXINE [Suspect]
     Active Substance: LEVOTHYROXINE
     Indication: Thyroiditis
     Dosage: PRODUCT TAKEN BY MOTHER
  2. RINVOQ [Suspect]
     Active Substance: UPADACITINIB
     Indication: Ankylosing spondylitis
     Dosage: PRODUCT TAKEN BY MOTHER
     Dates: start: 20230608, end: 20230702
  3. INSULIN NOS [Suspect]
     Active Substance: INSULIN NOS
     Indication: Gestational diabetes
     Dosage: PRODUCT TAKEN BY MOTHER
  4. INNOHEP [Suspect]
     Active Substance: TINZAPARIN SODIUM
     Indication: Deep vein thrombosis
     Dosage: PRODUCT TAKEN BY MOTHER?STRENGTH:  10000 IU ANTI XA/0.5 ML
     Dates: start: 20231104, end: 20240129
  5. CIMZIA [Suspect]
     Active Substance: CERTOLIZUMAB PEGOL
     Indication: Ankylosing spondylitis
     Dosage: PRODUCT TAKEN BY MOTHER
     Dates: start: 20230910, end: 20240105
  6. PREDNISONE [Suspect]
     Active Substance: PREDNISONE
     Indication: Ankylosing spondylitis
     Dosage: PRODUCT TAKEN BY MOTHER
     Dates: start: 20230910, end: 20231015

REACTIONS (2)
  - Premature baby [Recovered/Resolved with Sequelae]
  - Maternal exposure during pregnancy [Recovered/Resolved with Sequelae]

NARRATIVE: CASE EVENT DATE: 20240201
